FAERS Safety Report 7955226-7 (Version None)
Quarter: 2011Q4

REPORT INFORMATION
  Report Type: 
  Country: None (occurrence: None)
  Receive Date: 20111202
  Receipt Date: 20111123
  Transmission Date: 20120403
  Serious: Yes (Other)
  Sender: FDA-Public Use
  Company Number: US-JNJFOC-20111112711

PATIENT
  Sex: Female
  Weight: 68 kg

DRUGS (5)
  1. MESALAMINE [Concomitant]
  2. REMICADE [Suspect]
     Indication: CROHN'S DISEASE
     Route: 042
  3. PREDNISONE TAB [Concomitant]
  4. REMICADE [Suspect]
     Route: 042
     Dates: start: 20020402
  5. AZATHIOPRINE [Concomitant]

REACTIONS (1)
  - SKIN CANCER [None]
